FAERS Safety Report 9804221 (Version 2)
Quarter: 2015Q3

REPORT INFORMATION
  Report Type: Spontaneous
  Country: US (occurrence: None)
  Receive Date: 20140106
  Receipt Date: 20150713
  Transmission Date: 20151125
  Serious: Yes (Other)
  Sender: FDA-Public Use
  Company Number: 2013-00166

PATIENT
  Age: 61 Year
  Sex: Male
  Weight: 124.74 kg

DRUGS (4)
  1. ATENOLOL. [Concomitant]
     Active Substance: ATENOLOL
  2. ZICAM COLD REMEDY RAPIDMELTS [Suspect]
     Active Substance: ZINC ACETATE ANHYDROUS\ZINC GLUCONATE
     Indication: NASOPHARYNGITIS
     Dosage: 1 MELT ORALLY EVERY 4 HOURS
     Route: 048
     Dates: start: 20131206, end: 20131227
  3. ZICAM COLD REMEDY RAPIDMELTS [Suspect]
     Active Substance: ZINC ACETATE ANHYDROUS\ZINC GLUCONATE
     Indication: INFLUENZA
     Dosage: 1 MELT ORALLY EVERY 4 HOURS
     Route: 048
     Dates: start: 20131206, end: 20131227
  4. UNSPEICIFED MEDICATION FOR ACID REFLUX [Concomitant]

REACTIONS (1)
  - Ageusia [None]

NARRATIVE: CASE EVENT DATE: 20131206
